FAERS Safety Report 22087863 (Version 2)
Quarter: 2023Q1

REPORT INFORMATION
  Report Type: Report from Study
  Country: US (occurrence: US)
  Receive Date: 20230313
  Receipt Date: 20230314
  Transmission Date: 20230418
  Serious: Yes (Hospitalization)
  Sender: FDA-Public Use
  Company Number: US-ABBVIE-4338318

PATIENT
  Age: 71 Year
  Sex: Female

DRUGS (1)
  1. RINVOQ [Suspect]
     Active Substance: UPADACITINIB
     Indication: Product used for unknown indication
     Route: 048
     Dates: end: 2023

REACTIONS (14)
  - Chest pain [Unknown]
  - Dyspnoea [Unknown]
  - Feeling abnormal [Unknown]
  - Laboratory test abnormal [Recovering/Resolving]
  - Chest discomfort [Unknown]
  - Hypotension [Unknown]
  - Pain in extremity [Unknown]
  - Pulmonary mass [Unknown]
  - Arthralgia [Unknown]
  - Thyroid mass [Unknown]
  - Aspartate aminotransferase increased [Unknown]
  - Alanine aminotransferase increased [Unknown]
  - Fibrin D dimer increased [Unknown]
  - Hepatic steatosis [Unknown]

NARRATIVE: CASE EVENT DATE: 20230101
